FAERS Safety Report 4635514-2 (Version None)
Quarter: 2005Q2

REPORT INFORMATION
  Report Type: 
  Country: None (occurrence: None)
  Receive Date: 20050414
  Receipt Date: 20050411
  Transmission Date: 20051028
  Serious: Yes (Other)
  Sender: FDA-Public Use
  Company Number: GB-MERCK-0504GBR00068

PATIENT
  Age: 70 Year
  Sex: Female

DRUGS (19)
  1. QUININE [Concomitant]
     Route: 065
  2. FOSAMAX [Suspect]
     Route: 048
     Dates: start: 20020101, end: 20050321
  3. METFORMIN [Concomitant]
     Route: 065
  4. ASPIRIN [Concomitant]
     Route: 065
  5. EPOETIN [Concomitant]
     Route: 065
  6. LANSOPRAZOLE [Concomitant]
     Route: 065
  7. DOXAZOSIN MESYLATE [Concomitant]
     Route: 065
  8. CITALOPRAM [Concomitant]
     Route: 065
  9. AMITRIPTYLINE HYDROCHLORIDE [Concomitant]
     Route: 065
  10. SIMVASTATIN [Concomitant]
     Route: 065
  11. LISINOPRIL [Concomitant]
     Route: 065
  12. CALCIUM CARBONATE [Concomitant]
     Route: 065
  13. BETAHISTINE HYDROCHLORIDE [Concomitant]
     Route: 065
  14. FUROSEMIDE [Concomitant]
     Route: 065
  15. MORPHINE [Concomitant]
     Route: 065
  16. PREDNISOLONE [Concomitant]
     Route: 065
  17. DILTIAZEM MALATE [Concomitant]
     Route: 065
  18. INSULIN ASPART [Concomitant]
     Route: 065
  19. LACTULOSE [Concomitant]
     Route: 065

REACTIONS (1)
  - OSTEONECROSIS [None]
